FAERS Safety Report 9208020 (Version 1)
Quarter: 2013Q2

REPORT INFORMATION
  Report Type: Spontaneous
  Country: US (occurrence: US)
  Receive Date: 20130403
  Receipt Date: 20130403
  Transmission Date: 20140414
  Serious: No
  Sender: FDA-Public Use
  Company Number: US-009507513-1304USA000895

PATIENT
  Sex: Female
  Weight: 47.62 kg

DRUGS (3)
  1. IMPLANON [Suspect]
     Indication: CONTRACEPTION
     Dosage: 1 DF, UNK
     Route: 059
     Dates: start: 201103
  2. SEROQUEL [Concomitant]
     Indication: BIPOLAR DISORDER
  3. SEROQUEL [Concomitant]
     Indication: SCHIZOPHRENIA

REACTIONS (7)
  - Malaise [Unknown]
  - Amenorrhoea [Unknown]
  - Weight increased [Unknown]
  - Menorrhagia [Unknown]
  - Abdominal pain [Unknown]
  - Dizziness [Unknown]
  - Weight decreased [Unknown]
